FAERS Safety Report 9548895 (Version 1)
Quarter: 2013Q3

REPORT INFORMATION
  Report Type: Spontaneous
  Country: GB (occurrence: GB)
  Receive Date: 20130924
  Receipt Date: 20130924
  Transmission Date: 20140515
  Serious: Yes (Other)
  Sender: FDA-Public Use
  Company Number: GB-PFIZER INC-2013271104

PATIENT
  Age: 56 Year
  Sex: Male
  Weight: 110 kg

DRUGS (4)
  1. IBUPROFEN [Suspect]
     Dates: start: 20130909
  2. AMILORIDE HYDROCHLORIDE [Concomitant]
     Dates: start: 20130520, end: 20130617
  3. ATENOLOL [Concomitant]
     Dates: start: 20130520, end: 20130909
  4. DALACIN [Concomitant]
     Dates: start: 20130520, end: 20130617

REACTIONS (1)
  - Dyspnoea [Recovered/Resolved]
